FAERS Safety Report 20365485 (Version 1)
Quarter: 2022Q1

REPORT INFORMATION
  Report Type: Spontaneous
  Country: CZ (occurrence: CZ)
  Receive Date: 20220122
  Receipt Date: 20220122
  Transmission Date: 20220423
  Serious: Yes (Other)
  Sender: FDA-Public Use
  Company Number: CZ-NOVARTISPH-NVSC2022CZ006556

PATIENT
  Sex: Male

DRUGS (4)
  1. ZOLGENSMA [Suspect]
     Active Substance: ONASEMNOGENE ABEPARVOVEC-XIOI
     Indication: Product used for unknown indication
     Dosage: 68.78 ML
     Route: 065
     Dates: start: 20210121
  2. VIGANTOL [Concomitant]
     Indication: Product used for unknown indication
     Dosage: 1-0-0 DROPS
     Route: 065
  3. MALTOFER [Concomitant]
     Indication: Product used for unknown indication
     Dosage: 10-0-10 DROPS
     Route: 065
  4. BIOPRON [Concomitant]
     Indication: Product used for unknown indication
     Dosage: 0.25 ML QD, (PER PEG)
     Route: 065

REACTIONS (6)
  - Leukopenia [Recovered/Resolved]
  - C-reactive protein increased [Recovered/Resolved]
  - Hepatic enzyme increased [Recovered/Resolved]
  - Pyrexia [Recovered/Resolved]
  - Hyponatraemia [Recovered/Resolved]
  - Vomiting [Recovered/Resolved]
